FAERS Safety Report 8816895 (Version 1)
Quarter: 2012Q4

REPORT INFORMATION
  Report Type: Spontaneous
  Country: US (occurrence: None)
  Receive Date: 20121002
  Receipt Date: 20121002
  Transmission Date: 20130627
  Serious: Yes (Other)
  Sender: FDA-Public Use
  Company Number: None

PATIENT
  Age: 81 Year
  Sex: Male
  Weight: 115.67 kg

DRUGS (1)
  1. CLOPIDOGREL [Suspect]
     Dosage: 75 mg daily po
     Route: 048

REACTIONS (2)
  - Drug eruption [None]
  - Product substitution issue [None]
